FAERS Safety Report 20429676 (Version 1)
Quarter: 2022Q1

REPORT INFORMATION
  Report Type: Report from Study
  Country: FR (occurrence: FR)
  Receive Date: 20220204
  Receipt Date: 20220204
  Transmission Date: 20220424
  Serious: Yes (Other)
  Sender: FDA-Public Use
  Company Number: FR-SERVIER-S19009945

PATIENT

DRUGS (8)
  1. ONCASPAR [Suspect]
     Active Substance: PEGASPARGASE
     Indication: Acute lymphocytic leukaemia
     Dosage: 2250 IU, QD, D15, D43
     Route: 042
     Dates: start: 20180409, end: 20180512
  2. TN UNSPECIFIED [Concomitant]
     Indication: Acute lymphocytic leukaemia
     Dosage: 960 MG, D1, D29
     Route: 042
     Dates: start: 20180326, end: 20180427
  3. TN UNSPECIFIED [Concomitant]
     Indication: Acute lymphocytic leukaemia
     Dosage: 1.4 MG , D15, D22, D43, D50
     Route: 042
     Dates: start: 20180409, end: 20180519
  4. TN UNSPECIFIED [Concomitant]
     Indication: Acute lymphocytic leukaemia
     Dosage: 71 MG, D3 TO D6, D10 TO D13, D31-D34
     Route: 042
     Dates: start: 20180328, end: 20180510
  5. TN UNSPECIFIED [Concomitant]
     Dosage: 30 MG (D3, D31)
     Route: 037
     Dates: start: 20180328, end: 20180429
  6. TN UNSPECIFIED [Concomitant]
     Indication: Acute lymphocytic leukaemia
     Dosage: 55 MG, D1 TO D14, D29 TO D42
     Route: 048
     Dates: start: 20180326, end: 20180511
  7. TN UNSPECIFIED [Concomitant]
     Indication: Acute lymphocytic leukaemia
     Dosage: 12 MG, D3, D31
     Route: 037
     Dates: start: 20180328, end: 20180429
  8. TN UNSPECIFIED [Concomitant]
     Indication: Acute lymphocytic leukaemia
     Dosage: 15 MG,  D3, D31
     Route: 037
     Dates: start: 20180328, end: 20180429

REACTIONS (1)
  - Gamma-glutamyltransferase increased [Recovered/Resolved]

NARRATIVE: CASE EVENT DATE: 20180525
